FAERS Safety Report 8728050 (Version 5)
Quarter: 2012Q4

REPORT INFORMATION
  Report Type: 
  Country: US (occurrence: US)
  Receive Date: 20120817
  Receipt Date: 20120927
  Transmission Date: 20130627
  Serious: Yes (Other)
  Sender: FDA-Public Use
  Company Number: US-AMGEN-USASP2012051084

PATIENT
  Age: 57 Year
  Sex: Female
  Weight: 82.68 kg

DRUGS (16)
  1. NPLATE [Suspect]
     Indication: IDIOPATHIC THROMBOCYTOPENIC PURPURA
     Dosage: 2 mug/kg, qwk
     Route: 058
     Dates: start: 20120716
  2. PRILOSEC                           /00661201/ [Concomitant]
     Dosage: 20 mg, UNK
     Route: 048
  3. METOPROLOL TARTRATE [Concomitant]
     Dosage: 25 mg, UNK
     Route: 048
  4. PREDNISONE [Concomitant]
     Dosage: 20 mg, qd
     Route: 048
  5. AMBIEN [Concomitant]
     Dosage: 5 mg, UNK
     Route: 048
  6. ZOFRAN                             /00955301/ [Concomitant]
     Indication: NAUSEA
     Dosage: 8 mg, q12h
  7. PROCHLORPERAZINE MALEATE [Concomitant]
     Indication: NAUSEA
     Dosage: 10 mg, q6h
  8. POTASSIUM CHLORIDE CR [Concomitant]
     Dosage: 10 mEq, qid
  9. FLEXERIL                           /00428402/ [Concomitant]
     Indication: MUSCLE SPASMS
     Dosage: 5 mg, bid
  10. ENDOCET [Concomitant]
     Dosage: 650 mg, qid
     Route: 048
  11. MORPHINE SULPHATE [Concomitant]
     Dosage: 1 ml, q4h
  12. ACETAMINOPHEN [Concomitant]
  13. LISINOPRIL [Concomitant]
     Indication: HYPERTENSION
     Dosage: 10 mg, qd
     Dates: start: 201208, end: 20120820
  14. OXYCODONE [Concomitant]
  15. METOPROLOL SUCCINATE [Concomitant]
     Dosage: 50 mg, qd
  16. CORTICOSTEROID NOS [Concomitant]

REACTIONS (14)
  - Drug specific antibody present [Unknown]
  - Haemorrhage [Not Recovered/Not Resolved]
  - Platelet count decreased [Not Recovered/Not Resolved]
  - Splenomegaly [Unknown]
  - Multiple sclerosis [Unknown]
  - Metastatic neoplasm [Unknown]
  - Night sweats [Unknown]
  - Diarrhoea [Recovered/Resolved]
  - Blood pressure increased [Not Recovered/Not Resolved]
  - Abdominal discomfort [Unknown]
  - Temperature intolerance [Unknown]
  - Petechiae [Not Recovered/Not Resolved]
  - Bone density increased [Unknown]
  - Dizziness [Unknown]
